FAERS Safety Report 12625511 (Version 2)
Quarter: 2016Q3

REPORT INFORMATION
  Report Type: Spontaneous
  Country: JP (occurrence: JP)
  Receive Date: 20160805
  Receipt Date: 20160902
  Transmission Date: 20161109
  Serious: Yes (Hospitalization, Other)
  Sender: FDA-Public Use
  Company Number: JP-TEVA-681458ISR

PATIENT
  Age: 63 Year
  Sex: Female
  Weight: 47.9 kg

DRUGS (3)
  1. DEPAKENE [Suspect]
     Active Substance: VALPROIC ACID
     Indication: SCHIZOPHRENIA
     Dosage: 400 MILLIGRAM DAILY;
     Route: 048
     Dates: start: 20130611, end: 20140222
  2. POHYPNOL [Suspect]
     Active Substance: FLUNITRAZEPAM
     Indication: SCHIZOPHRENIA
     Dosage: 2 MILLIGRAM DAILY;
     Route: 048
     Dates: start: 20130625, end: 20140220
  3. ZYPREXA [Suspect]
     Active Substance: OLANZAPINE
     Indication: SCHIZOPHRENIA
     Dosage: 5 MILLIGRAM DAILY;
     Route: 048
     Dates: start: 20130709, end: 20140221

REACTIONS (7)
  - Sinus bradycardia [Recovered/Resolved]
  - Pancreatitis acute [Recovered/Resolved]
  - Pneumonia aspiration [Recovered/Resolved]
  - Neuroleptic malignant syndrome [Not Recovered/Not Resolved]
  - Electrocardiogram J wave abnormal [Recovered/Resolved]
  - Electrocardiogram QT prolonged [Recovered/Resolved]
  - Hypothermia [Recovered/Resolved]

NARRATIVE: CASE EVENT DATE: 201402
